FAERS Safety Report 7629099-6 (Version None)
Quarter: 2011Q3

REPORT INFORMATION
  Report Type: 
  Country: None (occurrence: None)
  Receive Date: 20110722
  Receipt Date: 20110722
  Transmission Date: 20111222
  Serious: Yes (Hospitalization)
  Sender: FDA-Public Use
  Company Number: None

PATIENT
  Age: 45 Year
  Sex: Male
  Weight: 142 kg

DRUGS (2)
  1. CEFTAROLINE [Suspect]
     Indication: DIABETIC FOOT INFECTION
     Dosage: 600 MG
     Route: 042
     Dates: start: 20110627, end: 20110719
  2. CEFTAROLINE [Suspect]
     Indication: STAPHYLOCOCCAL INFECTION
     Dosage: 600 MG
     Route: 042
     Dates: start: 20110627, end: 20110719

REACTIONS (3)
  - PAIN [None]
  - NEUTROPHIL COUNT DECREASED [None]
  - WHITE BLOOD CELL COUNT DECREASED [None]
